FAERS Safety Report 5300952-1 (Version None)
Quarter: 2007Q1

REPORT INFORMATION
  Report Type: 
  Country: None (occurrence: None)
  Receive Date: 20070208
  Receipt Date: 20060807
  Transmission Date: 20070707
  Serious: Yes (Death)
  Sender: FDA-Public Use
  Company Number: PROG00206002584

PATIENT
  Age: 59 Year
  Sex: Female

DRUGS (15)
  1. PROMETRIUM [Suspect]
     Indication: HORMONE REPLACEMENT THERAPY
     Dosage: DAILY ORAL
     Route: 048
  2. PROMETRIUM [Suspect]
     Indication: MENOPAUSAL SYMPTOMS
     Dosage: DAILY ORAL
     Route: 048
  3. PROMETRIUM [Suspect]
     Indication: OSTEOPOROSIS
     Dosage: DAILY ORAL
     Route: 048
  4. ESTRACE [Suspect]
     Indication: HORMONE REPLACEMENT THERAPY
     Dosage: DAILY
  5. ESTRACE [Suspect]
     Indication: MENOPAUSAL SYMPTOMS
     Dosage: DAILY
  6. ESTRACE [Suspect]
     Indication: OSTEOPOROSIS
     Dosage: DAILY
  7. MEDROXYPROGESTERONE [Suspect]
     Indication: HORMONE REPLACEMENT THERAPY
     Dosage: DAILY
  8. MEDROXYPROGESTERONE [Suspect]
     Indication: MENOPAUSAL SYMPTOMS
     Dosage: DAILY
  9. MEDROXYPROGESTERONE [Suspect]
     Indication: OSTEOPOROSIS
     Dosage: DAILY
  10. PROVERA [Suspect]
     Indication: HORMONE REPLACEMENT THERAPY
     Dosage: DAILY ORAL
     Route: 048
  11. PROVERA [Suspect]
     Indication: MENOPAUSAL SYMPTOMS
     Dosage: DAILY ORAL
     Route: 048
  12. PROVERA [Suspect]
     Indication: OSTEOPOROSIS
     Dosage: DAILY ORAL
     Route: 048
  13. ESTRADIOL [Suspect]
     Indication: HORMONE REPLACEMENT THERAPY
     Dosage: DAILY
  14. ESTRADIOL [Suspect]
     Indication: MENOPAUSAL SYMPTOMS
     Dosage: DAILY
  15. ESTRADIOL [Suspect]
     Indication: OSTEOPOROSIS
     Dosage: DAILY

REACTIONS (1)
  - BREAST CANCER [None]
